FAERS Safety Report 9520780 (Version 1)
Quarter: 2013Q3

REPORT INFORMATION
  Report Type: Spontaneous
  Country: DE (occurrence: None)
  Receive Date: 20130911
  Receipt Date: 20130911
  Transmission Date: 20140515
  Serious: Yes (Death)
  Sender: FDA-Public Use
  Company Number: 1308-1115

PATIENT
  Age: 83 Year
  Sex: Female

DRUGS (1)
  1. EYLEA [Suspect]
     Indication: AGE-RELATED MACULAR DEGENERATION
     Dosage: 2 INJECTIONS RIGHT EYE, INTRAOCULAR
     Route: 031
     Dates: start: 20130116

REACTIONS (2)
  - Eating disorder [None]
  - Anaesthetic complication [None]
